FAERS Safety Report 17679331 (Version 2)
Quarter: 2020Q3

REPORT INFORMATION
  Report Type: Report from Study
  Country: US (occurrence: US)
  Receive Date: 20200417
  Receipt Date: 20200806
  Transmission Date: 20201102
  Serious: Yes (Life-Threatening)
  Sender: FDA-Public Use
  Company Number: US-SA-2020SA098939

PATIENT

DRUGS (5)
  1. PREDNISONE. [Concomitant]
     Active Substance: PREDNISONE
     Indication: POLYMYALGIA RHEUMATICA
     Dosage: UNK
     Route: 065
  2. PREDNISONE. [Concomitant]
     Active Substance: PREDNISONE
     Dosage: 2 MG, UNK
     Route: 048
  3. HYDROXYCHLOROQUINE [Concomitant]
     Active Substance: HYDROXYCHLOROQUINE
     Indication: COVID-19
     Dosage: 400 MG
     Route: 048
     Dates: start: 20200331, end: 20200331
  4. SARILUMAB [Suspect]
     Active Substance: SARILUMAB
     Indication: COVID-19
     Dosage: REGN88 OR PLACEBO, 200 MG OR 400 MG INTRAVENOUSLY (IV) SINGLE DOSE FOR 1 HOUR, 1X
     Route: 042
     Dates: start: 20200401, end: 20200401
  5. HYDROXYCHLOROQUINE [Concomitant]
     Active Substance: HYDROXYCHLOROQUINE
     Dosage: 200 MG
     Route: 048
     Dates: start: 20200331, end: 20200331

REACTIONS (1)
  - Pneumonia pseudomonal [Recovered/Resolved]

NARRATIVE: CASE EVENT DATE: 20200410
